FAERS Safety Report 4519246-7 (Version None)
Quarter: 2004Q4

REPORT INFORMATION
  Report Type: 
  Country: None (occurrence: None)
  Receive Date: 20041201
  Receipt Date: 20041117
  Transmission Date: 20050328
  Serious: Yes (Death)
  Sender: FDA-Public Use
  Company Number: 2004JP002035

PATIENT
  Age: 22 Year
  Sex: Female

DRUGS (3)
  1. PROGRAF [Suspect]
     Indication: BONE MARROW TRANSPLANT
  2. PREDNISOLONE [Concomitant]
  3. MYCOPHENOLATE MOFETIL (MYCOPHENOLATE MOFETIL) [Concomitant]

REACTIONS (7)
  - B-CELL LYMPHOMA [None]
  - BRAIN HERNIATION [None]
  - CEREBRAL TOXOPLASMOSIS [None]
  - COMPLICATIONS OF TRANSPLANT SURGERY [None]
  - CONVULSION [None]
  - EPSTEIN-BARR VIRUS ANTIGEN POSITIVE [None]
  - GRAFT VERSUS HOST DISEASE [None]
